FAERS Safety Report 21039316 (Version 2)
Quarter: 2022Q3

REPORT INFORMATION
  Report Type: Spontaneous
  Country: GR (occurrence: GR)
  Receive Date: 20220704
  Receipt Date: 20220823
  Transmission Date: 20221027
  Serious: Yes (Other)
  Sender: FDA-Public Use
  Company Number: GR-NOVOPROD-933401

PATIENT
  Sex: Male

DRUGS (1)
  1. FIASP [Suspect]
     Active Substance: INSULIN ASPART
     Indication: Type 2 diabetes mellitus
     Dosage: UNK (IU,QD, AS NEEDED)
     Route: 058

REACTIONS (4)
  - Blood glucose increased [Recovered/Resolved]
  - Product physical issue [Unknown]
  - Device dislocation [Unknown]
  - Device leakage [Unknown]
